FAERS Safety Report 8538066-X (Version None)
Quarter: 2012Q3

REPORT INFORMATION
  Report Type: 
  Country: None (occurrence: None)
  Receive Date: 20120725
  Receipt Date: 20120719
  Transmission Date: 20120928
  Serious: Yes (Hospitalization)
  Sender: FDA-Public Use
  Company Number: US-PFIZER INC-2012173943

PATIENT
  Sex: Female
  Weight: 69.388 kg

DRUGS (16)
  1. BLINDED NO SUBJECT DRUG [Suspect]
     Indication: OSTEOARTHRITIS
     Dosage: THRICE A DAY
     Route: 048
     Dates: start: 20120307
  2. IBUPROFEN [Suspect]
     Indication: OSTEOARTHRITIS
     Dosage: 200 MG, AS NEEDED
     Route: 048
     Dates: start: 20120701
  3. NAPROXEN [Suspect]
     Dosage: THRICE A DAY
     Route: 048
     Dates: start: 20120307
  4. PLACEBO [Suspect]
     Indication: OSTEOARTHRITIS
     Dosage: THRICE A DAY
     Route: 048
     Dates: start: 20120307
  5. IBUPROFEN [Suspect]
  6. PLACEBO [Suspect]
     Indication: RHEUMATOID ARTHRITIS
  7. IBUPROFEN [Suspect]
     Indication: RHEUMATOID ARTHRITIS
  8. NEXIUM [Concomitant]
     Indication: PROPHYLAXIS
     Dosage: 40 MG, DAILY
     Route: 048
     Dates: start: 20120307
  9. CELECOXIB [Suspect]
     Indication: OSTEOARTHRITIS
     Dosage: THRICE A DAY
     Route: 048
     Dates: start: 20120307
  10. IBUPROFEN [Suspect]
     Indication: OSTEOARTHRITIS
     Dosage: THRICE A DAY
     Route: 048
     Dates: start: 20120307
  11. CELECOXIB [Suspect]
     Indication: RHEUMATOID ARTHRITIS
  12. NAPROXEN [Suspect]
  13. IBUPROFEN [Suspect]
     Dosage: THRICE A DAY
     Route: 048
     Dates: start: 20120307
  14. NAPROXEN [Suspect]
     Indication: OSTEOARTHRITIS
     Dosage: THRICE A DAY
     Route: 048
     Dates: start: 20120307
  15. NAPROXEN [Suspect]
     Indication: RHEUMATOID ARTHRITIS
  16. BLINDED NO SUBJECT DRUG [Suspect]
     Indication: RHEUMATOID ARTHRITIS

REACTIONS (1)
  - GASTROOESOPHAGEAL REFLUX DISEASE [None]
